FAERS Safety Report 9260709 (Version 1)
Quarter: 2013Q2

REPORT INFORMATION
  Report Type: Spontaneous
  Country: US (occurrence: US)
  Receive Date: 20130429
  Receipt Date: 20130429
  Transmission Date: 20140414
  Serious: No
  Sender: FDA-Public Use
  Company Number: US-VERTEX PHARMACEUTICALS INC-2013-005436

PATIENT
  Sex: Male

DRUGS (3)
  1. INCIVEK [Suspect]
     Indication: HEPATITIS C
     Dosage: UNK , TID
     Route: 048
     Dates: start: 20130415
  2. RIBAVIRIN [Suspect]
     Indication: HEPATITIS C
     Dosage: UNK, BID
     Dates: start: 20130315
  3. INTERFERON [Suspect]
     Indication: HEPATITIS C
     Dosage: UNK, QW
     Dates: start: 20130315

REACTIONS (6)
  - Skin discolouration [Recovered/Resolved]
  - Dry skin [Recovered/Resolved]
  - Lethargy [Unknown]
  - Fatigue [Unknown]
  - Rash [Recovered/Resolved]
  - Pruritus [Recovered/Resolved]
